FAERS Safety Report 9475991 (Version 1)
Quarter: 2013Q3

REPORT INFORMATION
  Report Type: Spontaneous
  Country: DE (occurrence: DE)
  Receive Date: 20130826
  Receipt Date: 20130826
  Transmission Date: 20140515
  Serious: Yes (Other)
  Sender: FDA-Public Use
  Company Number: DE-ASTELLAS-2013EU007136

PATIENT
  Age: 31 Year
  Sex: Male
  Weight: 79 kg

DRUGS (11)
  1. PROGRAF [Suspect]
     Indication: NEPHROPATHY TOXIC
     Dosage: 1.5 MG, BID
     Route: 048
     Dates: start: 200302
  2. PREDNISOLON AL [Concomitant]
     Dosage: 5 MG, UNKNOWN/D
     Route: 065
  3. PROGRAF [Concomitant]
     Dosage: 1 MG, UNKNOWN/D
     Route: 065
  4. PROGRAF [Concomitant]
     Dosage: 0.5 MG, UNKNOWN/D
     Route: 065
  5. BICANORM [Concomitant]
     Dosage: UNK
     Route: 065
  6. ALLOPURINOL [Concomitant]
     Dosage: 100 UNK, UNKNOWN/D
     Route: 065
  7. NOVAMINSULFON [Concomitant]
     Dosage: 500 MG/ML, UNKNOWN/D
     Route: 065
  8. AMPHO MORONAL [Concomitant]
     Dosage: 10 MG, UNKNOWN/D
     Route: 065
  9. PANTOZOL                           /01263204/ [Concomitant]
     Dosage: 20 MG, UNKNOWN/D
     Route: 065
  10. ADENURIC [Concomitant]
     Dosage: 80 MG, UNKNOWN/D
     Route: 065
  11. COLCHICUM DISPERT [Concomitant]
     Dosage: UNK
     Route: 065

REACTIONS (4)
  - Arthritis [Not Recovered/Not Resolved]
  - Arthritis [Not Recovered/Not Resolved]
  - Foot deformity [Unknown]
  - Synovitis [Unknown]
